FAERS Safety Report 9289371 (Version 2)
Quarter: 2013Q2

REPORT INFORMATION
  Report Type: Spontaneous
  Country: US (occurrence: US)
  Receive Date: 20130514
  Receipt Date: 20130521
  Transmission Date: 20140414
  Serious: Yes (Hospitalization)
  Sender: FDA-Public Use
  Company Number: US-BAXTER-2013BAX013199

PATIENT
  Sex: 0

DRUGS (1)
  1. ADVATE [Suspect]
     Indication: FACTOR VIII DEFICIENCY
     Route: 065

REACTIONS (3)
  - Appendicitis [Unknown]
  - Tonsillar haemorrhage [Unknown]
  - Post procedural haemorrhage [Unknown]
